FAERS Safety Report 6644782-7 (Version None)
Quarter: 2010Q1

REPORT INFORMATION
  Report Type: 
  Country: None (occurrence: None)
  Receive Date: 20100322
  Receipt Date: 20100317
  Transmission Date: 20100710
  Serious: Yes (Death)
  Sender: FDA-Public Use
  Company Number: US-SANOFI-AVENTIS-2010SA015196

PATIENT
  Age: 49 Year
  Sex: Male
  Weight: 90.7 kg

DRUGS (12)
  1. PLAVIX [Suspect]
     Route: 048
     Dates: start: 20090801, end: 20090901
  2. PLAVIX [Suspect]
     Route: 048
     Dates: start: 20090801, end: 20090901
  3. FISH OIL [Concomitant]
     Dates: end: 20090901
  4. COENZYME Q10 [Concomitant]
     Dates: end: 20090901
  5. LIPITOR [Concomitant]
  6. LOPRESSOR [Concomitant]
  7. IBUPROFEN [Concomitant]
  8. ASPIRIN [Concomitant]
  9. LASIX [Concomitant]
  10. DIGOXIN [Concomitant]
  11. PROTONIX [Concomitant]
  12. LISINOPRIL [Concomitant]

REACTIONS (1)
  - MYOCARDIAL INFARCTION [None]
